FAERS Safety Report 21727932 (Version 1)
Quarter: 2022Q4

REPORT INFORMATION
  Report Type: Spontaneous
  Country: FR (occurrence: None)
  Receive Date: 20221214
  Receipt Date: 20221214
  Transmission Date: 20230113
  Serious: Yes (Other)
  Sender: FDA-Public Use
  Company Number: FR-Orion Corporation ORION PHARMA-TREX2022-0175

PATIENT
  Age: 49 Year
  Sex: Male

DRUGS (4)
  1. METHOTREXATE [Suspect]
     Active Substance: METHOTREXATE
     Indication: Neurodermatitis
     Route: 065
     Dates: start: 201611
  2. ALITRETINOIN [Concomitant]
     Active Substance: ALITRETINOIN
     Route: 065
     Dates: start: 201712
  3. ALITRETINOIN [Concomitant]
     Active Substance: ALITRETINOIN
     Route: 065
  4. ALITRETINOIN [Concomitant]
     Active Substance: ALITRETINOIN
     Route: 065

REACTIONS (3)
  - Erysipelas [Unknown]
  - Product use in unapproved indication [Unknown]
  - Hypercholesterolaemia [Unknown]
